FAERS Safety Report 5575914-X (Version None)
Quarter: 2007Q4

REPORT INFORMATION
  Report Type: 
  Country: None (occurrence: None)
  Receive Date: 20071130
  Receipt Date: 20070801
  Transmission Date: 20080405
  Serious: No
  Sender: FDA-Public Use
  Company Number: US200708002066

PATIENT
  Age: 64 Year
  Sex: Female
  Weight: 74.8 kg

DRUGS (4)
  1. BYETTA [Suspect]
     Indication: TYPE 2 DIABETES MELLITUS
     Dosage: 5 UG, 2/D, SUBCUTANEOUS, 10 UG, 2/D, SUBCUTANEOUS
     Route: 058
     Dates: start: 20060701, end: 20060801
  2. BYETTA [Suspect]
     Indication: TYPE 2 DIABETES MELLITUS
     Dosage: 5 UG, 2/D, SUBCUTANEOUS, 10 UG, 2/D, SUBCUTANEOUS
     Route: 058
     Dates: start: 20060801
  3. CLARITIN [Concomitant]
  4. METFORMIN HCL [Concomitant]

REACTIONS (11)
  - INFLUENZA LIKE ILLNESS [None]
  - LACERATION [None]
  - MALAISE [None]
  - NASOPHARYNGITIS [None]
  - ODYNOPHAGIA [None]
  - ORAL INTAKE REDUCED [None]
  - PHARYNGOLARYNGEAL PAIN [None]
  - POSTNASAL DRIP [None]
  - PRODUCTIVE COUGH [None]
  - TOOTH FRACTURE [None]
  - WEIGHT DECREASED [None]
